FAERS Safety Report 7801992-0 (Version None)
Quarter: 2011Q4

REPORT INFORMATION
  Report Type: 
  Country: None (occurrence: None)
  Receive Date: 20111007
  Receipt Date: 20110927
  Transmission Date: 20120403
  Serious: Yes (Hospitalization)
  Sender: FDA-Public Use
  Company Number: JP-PFIZER INC-2011218579

PATIENT
  Age: 76 Year
  Sex: Male

DRUGS (2)
  1. ESTRACYT [Suspect]
     Indication: PROSTATE CANCER
     Dosage: 626.8 MG/DAY
     Route: 048
     Dates: start: 20110802, end: 20110821
  2. ZOMETA [Concomitant]
     Dosage: UNK
     Route: 041

REACTIONS (1)
  - CEREBRAL INFARCTION [None]
